FAERS Safety Report 21686970 (Version 1)
Quarter: 2022Q4

REPORT INFORMATION
  Report Type: Report from Study
  Country: DE (occurrence: DE)
  Receive Date: 20221206
  Receipt Date: 20221206
  Transmission Date: 20230113
  Serious: Yes (Death, Hospitalization, Other)
  Sender: FDA-Public Use
  Company Number: DE-BRISTOL-MYERS SQUIBB COMPANY-BMS-2021-077407

PATIENT
  Age: 71 Year
  Sex: Male
  Weight: 87 kg

DRUGS (2)
  1. NIVOLUMAB [Suspect]
     Active Substance: NIVOLUMAB
     Indication: Acute myeloid leukaemia
     Route: 041
     Dates: start: 20210623, end: 20210623
  2. AZACITIDINE [Suspect]
     Active Substance: AZACITIDINE
     Indication: Acute myeloid leukaemia
     Route: 041
     Dates: start: 20210623, end: 20210629

REACTIONS (2)
  - Sepsis [Fatal]
  - Enterococcal infection [Not Recovered/Not Resolved]

NARRATIVE: CASE EVENT DATE: 20210803
